FAERS Safety Report 4555574-7 (Version None)
Quarter: 2005Q1

REPORT INFORMATION
  Report Type: 
  Country: None (occurrence: None)
  Receive Date: 20041228
  Receipt Date: 20040329
  Transmission Date: 20050727
  Serious: Yes (Disabling, Other)
  Sender: FDA-Public Use
  Company Number: PHEH2004US03640

PATIENT
  Age: 46 Year
  Sex: Male
  Weight: 102 kg

DRUGS (6)
  1. AREDIA [Suspect]
     Indication: MULTIPLE MYELOMA
     Dosage: 90 MG, QMO, INTRAVENOUS
     Route: 042
     Dates: start: 20010924
  2. ZOMETA [Suspect]
     Indication: MULTIPLE MYELOMA
     Dosage: 4 MG, QMO, INTRAVENOUS
     Route: 042
     Dates: start: 20011203, end: 20030926
  3. LISINOPRIL [Concomitant]
  4. METOPROLOL [Concomitant]
  5. MS CONTIN [Concomitant]
  6. AMITRIPTYLINE (AMITRIPTYLINE) [Concomitant]

REACTIONS (4)
  - ASEPTIC NECROSIS BONE [None]
  - INFECTION [None]
  - PAIN [None]
  - TOOTH EXTRACTION [None]
